FAERS Safety Report 5948997-2 (Version None)
Quarter: 2008Q4

REPORT INFORMATION
  Report Type: 
  Country: None (occurrence: None)
  Receive Date: 20081111
  Receipt Date: 20081103
  Transmission Date: 20090506
  Serious: Yes (Other)
  Sender: FDA-Public Use
  Company Number: DE-ELI_LILLY_AND_COMPANY-DE200811000790

PATIENT
  Age: 32 Year
  Sex: Male

DRUGS (1)
  1. BYETTA [Suspect]
     Dosage: 5 UG, UNKNOWN
     Route: 065

REACTIONS (1)
  - PANCREATITIS [None]
